FAERS Safety Report 14870892 (Version 1)
Quarter: 2018Q2

REPORT INFORMATION
  Report Type: Spontaneous
  Country: US (occurrence: US)
  Receive Date: 20180509
  Receipt Date: 20180509
  Transmission Date: 20180711
  Serious: No
  Sender: FDA-Public Use
  Company Number: US-SHIRE-US201817030

PATIENT

DRUGS (4)
  1. XIIDRA [Suspect]
     Active Substance: LIFITEGRAST
     Indication: OFF LABEL USE
  2. TRAVATAN Z [Concomitant]
     Active Substance: TRAVOPROST
     Indication: GLAUCOMA
  3. COMBIGAN D [Concomitant]
     Indication: GLAUCOMA
  4. XIIDRA [Suspect]
     Active Substance: LIFITEGRAST
     Indication: CORNEAL OPACITY
     Dosage: 1 GTT, 2X/DAY:BID
     Route: 047
     Dates: start: 201801

REACTIONS (3)
  - Drug ineffective [Unknown]
  - Off label use [Unknown]
  - Vision blurred [Unknown]
